FAERS Safety Report 15643699 (Version 2)
Quarter: 2019Q1

REPORT INFORMATION
  Report Type: Spontaneous
  Country: US (occurrence: US)
  Receive Date: 20181121
  Receipt Date: 20190107
  Transmission Date: 20190417
  Serious: No
  Sender: FDA-Public Use
  Company Number: US-PFIZER INC-2018478912

PATIENT
  Age: 11 Year
  Sex: Female

DRUGS (1)
  1. GENOTROPIN MQ [Suspect]
     Active Substance: SOMATROPIN
     Dosage: 1.6 MG, DAILY
     Route: 058
     Dates: start: 201605

REACTIONS (32)
  - High density lipoprotein decreased [Unknown]
  - Insulin-like growth factor increased [Unknown]
  - Haemoglobin abnormal [Unknown]
  - Red cell distribution width increased [Unknown]
  - Blood triglycerides increased [Unknown]
  - Mean cell haemoglobin decreased [Unknown]
  - Platelet count increased [Unknown]
  - Cortisol decreased [Unknown]
  - Iron binding capacity unsaturated increased [Unknown]
  - Blood cholesterol [Unknown]
  - Blood alkaline phosphatase decreased [Unknown]
  - Amylase decreased [Unknown]
  - Blood osmolarity increased [Unknown]
  - Insulin C-peptide increased [Unknown]
  - Mean cell haemoglobin concentration [Unknown]
  - Malaise [Unknown]
  - Blood calcium increased [Unknown]
  - Blood creatinine decreased [Unknown]
  - Lymphocyte count increased [Unknown]
  - Blood urea increased [Unknown]
  - Aspartate aminotransferase increased [Unknown]
  - Iron binding capacity total increased [Unknown]
  - Blood prolactin decreased [Unknown]
  - Eosinophil count increased [Unknown]
  - Blood glucose increased [Unknown]
  - Alanine aminotransferase increased [Unknown]
  - Blood urea nitrogen/creatinine ratio increased [Unknown]
  - Transferrin saturation decreased [Unknown]
  - Blood corticotrophin decreased [Unknown]
  - Blood thyroid stimulating hormone decreased [Unknown]
  - Haematocrit decreased [Unknown]
  - Carbon dioxide decreased [Unknown]
